FAERS Safety Report 8615487-8 (Version None)
Quarter: 2012Q3

REPORT INFORMATION
  Report Type: 
  Country: None (occurrence: None)
  Receive Date: 20120823
  Receipt Date: 20120821
  Transmission Date: 20120928
  Serious: Yes (Death)
  Sender: FDA-Public Use
  Company Number: CA-ELI_LILLY_AND_COMPANY-CA201207005336

PATIENT
  Sex: Male
  Weight: 126 kg

DRUGS (10)
  1. PANTOPRAZOLE SODIUM [Concomitant]
     Dosage: 40 MG, QD
  2. METFORMIN [Concomitant]
     Dosage: 300 MG, TID
  3. ALDACTONE [Concomitant]
     Dosage: 25 MG, QD
  4. DILTIAZEM [Concomitant]
     Dosage: 120 MG, QD
  5. ADCIRCA [Suspect]
     Indication: PULMONARY HYPERTENSION
     Dosage: 20 MG, QD
     Route: 048
     Dates: start: 20090101
  6. BOSENTAN [Concomitant]
     Dosage: 125 MG, BID
  7. LASIX [Concomitant]
     Dosage: 80 MG, BID
  8. POTASSIUM CHLORIDE [Concomitant]
     Dosage: 20 MEQ, BID
  9. ADCIRCA [Suspect]
     Dosage: 20 MG, TID
     Route: 048
  10. WARFARIN SODIUM [Concomitant]

REACTIONS (4)
  - OVERDOSE [None]
  - SEPSIS [None]
  - RENAL FAILURE [None]
  - SKIN ULCER [None]
